FAERS Safety Report 6866481-9 (Version None)
Quarter: 2010Q3

REPORT INFORMATION
  Report Type: 
  Country: None (occurrence: None)
  Receive Date: 20100722
  Receipt Date: 20100709
  Transmission Date: 20110219
  Serious: Yes (Other)
  Sender: FDA-Public Use
  Company Number: PHHY2010BR45565

PATIENT
  Age: 29 Year
  Sex: Male
  Weight: 120 kg

DRUGS (1)
  1. CODATEN [Suspect]
     Indication: BACK PAIN
     Dosage: 1 TABLET
     Route: 048
     Dates: start: 20100709

REACTIONS (6)
  - FEELING COLD [None]
  - HYPOTENSION [None]
  - LOSS OF CONSCIOUSNESS [None]
  - PYREXIA [None]
  - SOMNOLENCE [None]
  - VERTIGO [None]
